APPROVED DRUG PRODUCT: ACTHAR GEL
Active Ingredient: CORTICOTROPIN
Strength: 40 UNITS/ML
Dosage Form/Route: INJECTABLE;INJECTION
Application: N008372 | Product #006
Applicant: MALLINCKRODT PHARMACEUTICALS IRELAND LTD
Approved: Approved Prior to Jan 1, 1982 | RLD: No | RS: No | Type: DISCN